FAERS Safety Report 8360771-9 (Version None)
Quarter: 2012Q2

REPORT INFORMATION
  Report Type: 
  Country: None (occurrence: None)
  Receive Date: 20120515
  Receipt Date: 20120511
  Transmission Date: 20120825
  Serious: Yes (Other)
  Sender: FDA-Public Use
  Company Number: CH-PFIZER INC-2012114954

PATIENT
  Age: 84 Year
  Sex: Male

DRUGS (9)
  1. ATORVASTATIN CALCIUM [Suspect]
     Dosage: 20 MG, DAILY
     Route: 048
     Dates: start: 20090101
  2. SEROQUEL [Suspect]
     Dosage: 75 MG, DAILY
     Route: 048
     Dates: start: 20120207, end: 20120227
  3. PLAVIX [Suspect]
     Dosage: 75 MG, DAILY
     Route: 048
     Dates: start: 20090101, end: 20120315
  4. ESCITALOPRAM [Concomitant]
     Dosage: 20 MG, DAILY
     Route: 048
     Dates: start: 20120104, end: 20120227
  5. SEROQUEL [Suspect]
     Dosage: 50 MG, DAILY
     Route: 048
     Dates: start: 20120201, end: 20120206
  6. PANTOPRAZOLE [Suspect]
     Dosage: UNK
     Route: 048
  7. TEMESTA [Suspect]
     Dosage: 1.5 MG, DAILY
     Route: 048
     Dates: start: 20120104, end: 20120201
  8. TEMESTA [Suspect]
     Dosage: 3 MG, DAILY
     Route: 048
     Dates: start: 20120202, end: 20120219
  9. TEMESTA [Suspect]
     Dosage: 2 MG, DAILY
     Route: 048
     Dates: start: 20120220, end: 20120305

REACTIONS (1)
  - PANCYTOPENIA [None]
